FAERS Safety Report 8644266 (Version 3)
Quarter: 2013Q1

REPORT INFORMATION
  Report Type: Report from Study
  Country: FR (occurrence: FR)
  Receive Date: 20120629
  Receipt Date: 20130325
  Transmission Date: 20140127
  Serious: Yes (Hospitalization)
  Sender: FDA-Public Use
  Company Number: FR-ABBOTT-12P-056-0947459-00

PATIENT
  Age: 56 Year
  Sex: Female
  Weight: 92 kg

DRUGS (11)
  1. HUMIRA [Suspect]
     Indication: CROHN^S DISEASE
     Route: 058
     Dates: start: 20071029
  2. ARESTAL [Concomitant]
     Indication: CROHN^S DISEASE
     Dosage: 1 CP
     Dates: start: 2007
  3. BEDELIX [Concomitant]
     Indication: CROHN^S DISEASE
     Dosage: 2 BAGS
  4. PROPRANOLOL [Concomitant]
     Indication: HYPERTENSION
     Dates: start: 2008
  5. COKENZEN [Concomitant]
     Indication: HYPERTENSION
     Dates: start: 2008
  6. RILMENIDINE [Concomitant]
     Indication: HYPERTENSION
  7. ALPRAZOLAM [Concomitant]
     Indication: ANXIETY
  8. ANTIHISTAMINES [Concomitant]
     Indication: RHINITIS
     Dates: start: 20111209
  9. RHINOCORT [Concomitant]
     Indication: RHINITIS
     Dosage: 2 SPRAY QD
     Dates: start: 20111209
  10. TRIDESONIT [Concomitant]
     Indication: PSORIASIS
     Dates: start: 2011
  11. ZOVIRAX [Concomitant]
     Indication: ORAL HERPES
     Dates: start: 201003, end: 201006

REACTIONS (1)
  - Cough [Recovered/Resolved]
